FAERS Safety Report 7119983-4 (Version None)
Quarter: 2010Q4

REPORT INFORMATION
  Report Type: 
  Country: None (occurrence: None)
  Receive Date: 20101123
  Receipt Date: 20101115
  Transmission Date: 20110411
  Serious: Yes (Hospitalization, Other)
  Sender: FDA-Public Use
  Company Number: US-ROCHE-718651

PATIENT
  Sex: Female
  Weight: 48.5 kg

DRUGS (3)
  1. ACCUTANE [Suspect]
     Route: 048
     Dates: start: 19980916, end: 19990301
  2. PREDNISONE [Concomitant]
     Indication: ACNE
  3. ADDERALL 10 [Concomitant]

REACTIONS (10)
  - ARTHRALGIA [None]
  - ATTENTION DEFICIT/HYPERACTIVITY DISORDER [None]
  - ECZEMA NUMMULAR [None]
  - GASTROINTESTINAL INJURY [None]
  - INFLAMMATORY BOWEL DISEASE [None]
  - IRON DEFICIENCY ANAEMIA [None]
  - NEPHROLITHIASIS [None]
  - PANCREATITIS [None]
  - PITYRIASIS ROSEA [None]
  - PROCTITIS ULCERATIVE [None]
